FAERS Safety Report 13100727 (Version 2)
Quarter: 2017Q1

REPORT INFORMATION
  Report Type: Report from Study
  Country: MX (occurrence: MX)
  Receive Date: 20170110
  Receipt Date: 20170113
  Transmission Date: 20170428
  Serious: Yes (Death)
  Sender: FDA-Public Use
  Company Number: PHHY2017MX002836

PATIENT
  Age: 95 Year
  Sex: Female
  Weight: 80.5 kg

DRUGS (5)
  1. INSULIN [Concomitant]
     Active Substance: INSULIN NOS
     Indication: DIABETES MELLITUS
     Dosage: 23 U, (10 U IN MORNING, 13 U IN NIGHT), (15 YEARS AGO)
     Route: 058
  2. PRAVASTATIN. [Concomitant]
     Active Substance: PRAVASTATIN
     Indication: PRODUCT USED FOR UNKNOWN INDICATION
     Dosage: UNK
     Route: 065
  3. DOLO-NEUROBION (DICLOFENAC SODIUM/VIT B1 HCL/VIT B6 HCL/VIT B12) [Concomitant]
     Indication: PRODUCT USED FOR UNKNOWN INDICATION
     Dosage: UNK
     Route: 065
  4. EXFORGE [Suspect]
     Active Substance: AMLODIPINE BESYLATE\VALSARTAN
     Indication: HYPERTENSION
     Dosage: 1.5 DF (AMLODIPINE 5 MG, VALSARTAN 160 MG), (1 IN THE MORNING AND 0.5 AT NIGHT)
     Route: 048
     Dates: start: 2006, end: 20161215
  5. ASPIRIN PROTECT [Concomitant]
     Active Substance: ASPIRIN
     Indication: ANTICOAGULANT THERAPY
     Dosage: 1 DF, UNK
     Route: 048
     Dates: start: 2006, end: 20161216

REACTIONS (9)
  - Respiratory failure [Fatal]
  - Pulmonary oedema [Fatal]
  - Neuropathy peripheral [Unknown]
  - Renal failure [Fatal]
  - Wrong technique in product usage process [Recovered/Resolved]
  - Infarction [Fatal]
  - Cardiac failure [Fatal]
  - Inappropriate schedule of drug administration [Recovered/Resolved]
  - Blood cholesterol increased [Recovering/Resolving]

NARRATIVE: CASE EVENT DATE: 2006
